FAERS Safety Report 15888620 (Version 1)
Quarter: 2019Q1

REPORT INFORMATION
  Report Type: Spontaneous
  Country: US (occurrence: US)
  Receive Date: 20190129
  Receipt Date: 20190129
  Transmission Date: 20190417
  Serious: No
  Sender: FDA-Public Use
  Company Number: None

PATIENT
  Age: 53 Year
  Sex: Male
  Weight: 90 kg

DRUGS (3)
  1. BUPROPION XL [Concomitant]
     Active Substance: BUPROPION
  2. ATORVASTATIN [Concomitant]
     Active Substance: ATORVASTATIN
  3. TRINTELLIX [Suspect]
     Active Substance: VORTIOXETINE HYDROBROMIDE
     Indication: DEPRESSION
     Dosage: ?          QUANTITY:1 TABLET(S);?
     Route: 048
     Dates: start: 20181227, end: 20190129

REACTIONS (3)
  - Fatigue [None]
  - Somnolence [None]
  - Ejaculation delayed [None]

NARRATIVE: CASE EVENT DATE: 20190122
